FAERS Safety Report 6247000-7 (Version None)
Quarter: 2009Q2

REPORT INFORMATION
  Report Type: 
  Country: None (occurrence: None)
  Receive Date: 20090624
  Receipt Date: 20090624
  Transmission Date: 20091009
  Serious: Yes (Hospitalization)
  Sender: FDA-Public Use
  Company Number: None

PATIENT
  Sex: Male
  Weight: 53.2 kg

DRUGS (4)
  1. DAUNORUBICIN HCL [Suspect]
     Dosage: 40 MG
     Dates: end: 20090613
  2. CYTARABINE [Suspect]
     Dosage: 70 MG
     Dates: end: 20090611
  3. PREDNISONE [Suspect]
     Dosage: 1000 MG
  4. VINCRISTINE SULFATE [Suspect]
     Dosage: 2 MG
     Dates: end: 20090613

REACTIONS (14)
  - ABDOMINAL PAIN LOWER [None]
  - APPENDICITIS [None]
  - BLOOD CULTURE POSITIVE [None]
  - CAECITIS [None]
  - CLOSTRIDIAL INFECTION [None]
  - COLITIS [None]
  - GASTROINTESTINAL NECROSIS [None]
  - HEPATOSPLENOMEGALY [None]
  - HYPERKALAEMIA [None]
  - HYPOTENSION [None]
  - ILEUS [None]
  - NAUSEA [None]
  - TUMOUR LYSIS SYNDROME [None]
  - VOMITING [None]
